FAERS Safety Report 16189188 (Version 2)
Quarter: 2019Q2

REPORT INFORMATION
  Report Type: Spontaneous
  Country: RO (occurrence: RO)
  Receive Date: 20190412
  Receipt Date: 20190529
  Transmission Date: 20190711
  Serious: Yes (Other)
  Sender: FDA-Public Use
  Company Number: RO-ROCHE-1709573

PATIENT
  Age: 8 Year
  Sex: Female
  Weight: 24 kg

DRUGS (10)
  1. ROACTEMRA [Suspect]
     Active Substance: TOCILIZUMAB
     Route: 042
     Dates: start: 20171101
  2. ROACTEMRA [Suspect]
     Active Substance: TOCILIZUMAB
     Route: 042
     Dates: start: 20171129
  3. PREDNISONE. [Concomitant]
     Active Substance: PREDNISONE
     Indication: STILL^S DISEASE
     Route: 048
     Dates: start: 201301
  4. ROACTEMRA [Suspect]
     Active Substance: TOCILIZUMAB
     Indication: STILL^S DISEASE
     Dosage: 552 MG
     Route: 042
     Dates: start: 20160120
  5. ROACTEMRA [Suspect]
     Active Substance: TOCILIZUMAB
     Route: 042
     Dates: start: 20171213
  6. ROACTEMRA [Suspect]
     Active Substance: TOCILIZUMAB
     Route: 042
     Dates: start: 20180110
  7. ROACTEMRA [Suspect]
     Active Substance: TOCILIZUMAB
     Route: 042
     Dates: start: 20171115
  8. METHOTREXATE. [Concomitant]
     Active Substance: METHOTREXATE
     Indication: STILL^S DISEASE
     Route: 048
     Dates: start: 201303
  9. METHOTREXATE. [Concomitant]
     Active Substance: METHOTREXATE
     Route: 048
     Dates: start: 20180101
  10. CYCLOSPORINE. [Concomitant]
     Active Substance: CYCLOSPORINE
     Indication: STILL^S DISEASE
     Route: 048
     Dates: start: 201506

REACTIONS (19)
  - High density lipoprotein decreased [Recovered/Resolved]
  - Rash papular [Recovered/Resolved]
  - Blood lactate dehydrogenase increased [Unknown]
  - Pallor [Unknown]
  - Mobility decreased [Not Recovered/Not Resolved]
  - Pharyngitis [Recovered/Resolved]
  - Gait disturbance [Unknown]
  - Red cell distribution width increased [Recovered/Resolved]
  - Abdominal distension [Unknown]
  - Red blood cell count increased [Recovered/Resolved]
  - Blood albumin increased [Unknown]
  - Joint destruction [Not Recovered/Not Resolved]
  - Transaminases increased [Recovering/Resolving]
  - Monocyte count increased [Recovered/Resolved]
  - Haemoglobin increased [Recovered/Resolved]
  - Platelet count decreased [Recovered/Resolved]
  - Blood fibrinogen decreased [Unknown]
  - Neutrophil count decreased [Not Recovered/Not Resolved]
  - Blood triglycerides increased [Recovered/Resolved]

NARRATIVE: CASE EVENT DATE: 20160128
